FAERS Safety Report 25493438 (Version 1)
Quarter: 2025Q2

REPORT INFORMATION
  Report Type: Spontaneous
  Country: FR (occurrence: FR)
  Receive Date: 20250630
  Receipt Date: 20250630
  Transmission Date: 20250717
  Serious: Yes (Other)
  Sender: MYLAN
  Company Number: None

PATIENT
  Age: 50 Year
  Sex: Male
  Weight: 123 kg

DRUGS (2)
  1. VANCOMYCIN [Suspect]
     Active Substance: VANCOMYCIN
     Indication: Urosepsis
     Dates: start: 20250208, end: 20250210
  2. CEFTRIAXONE SODIUM [Concomitant]
     Active Substance: CEFTRIAXONE SODIUM
     Indication: Urinary tract infection
     Dosage: 2 GRAM, QD (2G/D)
     Dates: start: 20250206, end: 20250210

REACTIONS (2)
  - Hepatocellular injury [Recovering/Resolving]
  - Vancomycin infusion reaction [Recovered/Resolved]

NARRATIVE: CASE EVENT DATE: 20250208
